FAERS Safety Report 7463400-1 (Version None)
Quarter: 2011Q2

REPORT INFORMATION
  Report Type: 
  Country: None (occurrence: None)
  Receive Date: 20110506
  Receipt Date: 20110426
  Transmission Date: 20111010
  Serious: Yes (Hospitalization)
  Sender: FDA-Public Use
  Company Number: A0925661A

PATIENT
  Age: 65 Year
  Sex: Male
  Weight: 115 kg

DRUGS (2)
  1. MELPHALAN HYDROCHLORIDE [Suspect]
     Route: 042
     Dates: start: 20110307, end: 20110308
  2. LEUKINE [Suspect]
     Dosage: 600MCG PER DAY
     Route: 042
     Dates: start: 20110311

REACTIONS (2)
  - PNEUMONIA [None]
  - HYPOXIA [None]
